FAERS Safety Report 5609792-7 (Version None)
Quarter: 2008Q1

REPORT INFORMATION
  Report Type: 
  Country: None (occurrence: None)
  Receive Date: 20080131
  Receipt Date: 20071101
  Transmission Date: 20080703
  Serious: No
  Sender: FDA-Public Use
  Company Number: US-BAYER-200713600BCC

PATIENT
  Age: 25 Year
  Sex: Female
  Weight: 109 kg

DRUGS (1)
  1. ALEVE [Suspect]
     Indication: MIGRAINE
     Dosage: TOTAL DAILY DOSE: 880 MG  UNIT DOSE: 220 MG
     Route: 048
     Dates: start: 20071101

REACTIONS (1)
  - MIGRAINE [None]
